FAERS Safety Report 19275445 (Version 1)
Quarter: 2021Q2

REPORT INFORMATION
  Report Type: Spontaneous
  Country: US (occurrence: US)
  Receive Date: 20210519
  Receipt Date: 20210519
  Transmission Date: 20210717
  Serious: Yes (Other)
  Sender: FDA-Public Use
  Company Number: US-BAYER-2021-141216

PATIENT
  Age: 15 Year
  Sex: Female

DRUGS (1)
  1. LEVONORGESTREL IUS [UNKNOWN] [Suspect]
     Active Substance: LEVONORGESTREL
     Indication: MENSTRUAL DISORDER
     Dosage: UNKNOWN ?G PER DAY CONTINUOUSLY
     Route: 015

REACTIONS (2)
  - Device expulsion [Recovered/Resolved]
  - Post procedural haemorrhage [None]
